FAERS Safety Report 5758166-7 (Version None)
Quarter: 2008Q2

REPORT INFORMATION
  Report Type: 
  Country: None (occurrence: None)
  Receive Date: 20080530
  Receipt Date: 20080514
  Transmission Date: 20081010
  Serious: Yes (Other)
  Sender: FDA-Public Use
  Company Number: S08-GER-01887-01

PATIENT
  Sex: Female
  Weight: 60 kg

DRUGS (4)
  1. CITALOPRAM HYDROBROMIDE [Suspect]
     Dosage: 5120 MG ONCE PO
     Route: 048
     Dates: start: 20080514, end: 20080514
  2. CITALOPRAM HYDROBROMIDE [Suspect]
  3. SEROQUEL [Suspect]
     Dosage: 1750 MG ONCE PO
     Route: 048
     Dates: start: 20080514, end: 20080514
  4. WHISKY [Suspect]
     Dosage: 1,  ONCE PO
     Route: 048
     Dates: start: 20080514, end: 20080514

REACTIONS (4)
  - COMA [None]
  - HYPOTONIA [None]
  - MULTIPLE DRUG OVERDOSE INTENTIONAL [None]
  - SUICIDE ATTEMPT [None]
